FAERS Safety Report 5701568-5 (Version None)
Quarter: 2008Q2

REPORT INFORMATION
  Report Type: 
  Country: None (occurrence: None)
  Receive Date: 20080408
  Receipt Date: 20080325
  Transmission Date: 20081010
  Serious: Yes (Life-Threatening, Hospitalization)
  Sender: FDA-Public Use
  Company Number: TRP_01007_2007

PATIENT
  Sex: Male
  Weight: 95.5 kg

DRUGS (6)
  1. RIBAPAK /RIBAVARIN/THREE RIVERS PHARMA [Suspect]
     Indication: HEPATITIS C
     Dosage: 600 MG BID ORAL
     Route: 048
     Dates: start: 20071102, end: 20071203
  2. PEGASYS/PEGINTERFERON ALFA-2A/ROCHE 180 ?G [Suspect]
     Indication: HEPATITIS C
     Dosage: 180 ?G  1X/WEEK SUBCUTANEOUS
     Route: 058
     Dates: start: 20071102, end: 20071130
  3. HUMALOG MIX 75/25 [Concomitant]
  4. METOPROLOL TARTRATE [Concomitant]
  5. MOEXIPRIL HCL [Concomitant]
  6. ZEMPLAR [Concomitant]

REACTIONS (20)
  - ABNORMAL BEHAVIOUR [None]
  - ASTHENIA [None]
  - ATAXIA [None]
  - DIZZINESS [None]
  - DRY SKIN [None]
  - GAIT DISTURBANCE [None]
  - HEADACHE [None]
  - HYPOAESTHESIA [None]
  - HYPOREFLEXIA [None]
  - MUSCLE SPASMS [None]
  - NYSTAGMUS [None]
  - OCULAR ICTERUS [None]
  - ORAL INTAKE REDUCED [None]
  - PAIN IN EXTREMITY [None]
  - PANCYTOPENIA [None]
  - RENAL FAILURE CHRONIC [None]
  - SINUS BRADYCARDIA [None]
  - SKIN DISCOLOURATION [None]
  - SKIN EXFOLIATION [None]
  - VISION BLURRED [None]
